FAERS Safety Report 9598673 (Version 4)
Quarter: 2014Q2

REPORT INFORMATION
  Report Type: Report from Study
  Country: ES (occurrence: ES)
  Receive Date: 20131004
  Receipt Date: 20140425
  Transmission Date: 20141212
  Serious: Yes (Other)
  Sender: FDA-Public Use
  Company Number: ES-ROCHE-1281571

PATIENT
  Sex: 0

DRUGS (3)
  1. BEVACIZUMAB [Suspect]
     Indication: NON-SMALL CELL LUNG CANCER
     Dosage: UPTO 6 CYCLES FOLLOWED BY BEVACIZUMAB ALONE
     Route: 065
  2. CISPLATIN [Suspect]
     Indication: NON-SMALL CELL LUNG CANCER
     Dosage: UPTO 6 CYCLES
     Route: 065
  3. DOCETAXEL [Suspect]
     Indication: NON-SMALL CELL LUNG CANCER
     Dosage: UPTO 6 CYCLES
     Route: 065

REACTIONS (4)
  - Neutropenia [Unknown]
  - Asthenia [Unknown]
  - Mucosal inflammation [Unknown]
  - Diarrhoea [Unknown]
